FAERS Safety Report 7755340-5 (Version None)
Quarter: 2011Q3

REPORT INFORMATION
  Report Type: 
  Country: None (occurrence: None)
  Receive Date: 20110914
  Receipt Date: 20110831
  Transmission Date: 20111222
  Serious: Yes (Other)
  Sender: FDA-Public Use
  Company Number: US-1187825

PATIENT
  Sex: Female

DRUGS (1)
  1. TOBREX [Suspect]
     Dosage: 3 DOSES OPHTHALMIC
     Route: 047
     Dates: start: 20110401

REACTIONS (5)
  - TOXICITY TO VARIOUS AGENTS [None]
  - AMNESIA [None]
  - BLINDNESS [None]
  - DIZZINESS [None]
  - FEELING ABNORMAL [None]
